FAERS Safety Report 5018162-4 (Version None)
Quarter: 2006Q2

REPORT INFORMATION
  Report Type: 
  Country: None (occurrence: None)
  Receive Date: 20060605
  Receipt Date: 20060526
  Transmission Date: 20061013
  Serious: Yes (Disabling, Other)
  Sender: FDA-Public Use
  Company Number: JP-JNJFOC-20060405197

PATIENT
  Sex: Female

DRUGS (2)
  1. OFLOCET [Suspect]
     Indication: PYELONEPHRITIS
     Route: 048
     Dates: start: 20060126, end: 20060225
  2. CEFTRIAXONE [Concomitant]
     Indication: PYELONEPHRITIS
     Route: 030
     Dates: start: 20060126, end: 20060221

REACTIONS (2)
  - HYPERAESTHESIA [None]
  - MYALGIA [None]
